FAERS Safety Report 9760370 (Version 2)
Quarter: 2014Q1

REPORT INFORMATION
  Report Type: Spontaneous
  Country: US (occurrence: None)
  Receive Date: 20131212
  Receipt Date: 20140207
  Transmission Date: 20141002
  Serious: Yes (Hospitalization, Other)
  Sender: FDA-Public Use
  Company Number: ADR-2013-02260

PATIENT
  Age: 54 Year
  Sex: Male

DRUGS (1)
  1. LIORESAL INTRATHECAL (BACLOFEN INJECTION) [Suspect]
     Indication: MUSCLE SPASTICITY
     Dates: start: 20090414, end: 20090807

REACTIONS (3)
  - Incision site haemorrhage [None]
  - Staphylococcal infection [None]
  - Streptococcal infection [None]
